FAERS Safety Report 4846073-3 (Version None)
Quarter: 2005Q4

REPORT INFORMATION
  Report Type: 
  Country: None (occurrence: None)
  Receive Date: 20051130
  Receipt Date: 20051123
  Transmission Date: 20060501
  Serious: Yes (Hospitalization)
  Sender: FDA-Public Use
  Company Number: 2005RR-01204

PATIENT
  Age: 22 Year
  Sex: Female

DRUGS (2)
  1. MINOCYCLINE HYDROCHLORIDE [Suspect]
     Indication: ACNE
     Dosage: ORAL
     Route: 048
  2. AZITHROMYCIN [Suspect]
     Indication: PHARYNGITIS
     Dosage: 500 MG, QD, ORAL
     Route: 048

REACTIONS (12)
  - ANGIONEUROTIC OEDEMA [None]
  - BLOOD CREATINE PHOSPHOKINASE MB INCREASED [None]
  - BLOOD PRESSURE DECREASED [None]
  - EJECTION FRACTION DECREASED [None]
  - ELECTROCARDIOGRAM ST SEGMENT ELEVATION [None]
  - EOSINOPHILIC MYOCARDITIS [None]
  - HYPERSENSITIVITY [None]
  - TRANSAMINASES INCREASED [None]
  - TROPONIN I INCREASED [None]
  - VENOUS PRESSURE JUGULAR INCREASED [None]
  - VENTRICULAR DYSFUNCTION [None]
  - WHITE BLOOD CELL COUNT INCREASED [None]
